FAERS Safety Report 22105331 (Version 2)
Quarter: 2023Q1

REPORT INFORMATION
  Report Type: Spontaneous
  Country: QA (occurrence: QA)
  Receive Date: 20230317
  Receipt Date: 20230324
  Transmission Date: 20230418
  Serious: Yes (Life-Threatening, Hospitalization, Other)
  Sender: FDA-Public Use
  Company Number: QA-MLMSERVICE-20230228-4131792-1

PATIENT
  Age: 2 Year
  Sex: Male

DRUGS (4)
  1. PIPERACILLIN AND TAZOBACTAM [Suspect]
     Active Substance: PIPERACILLIN SODIUM\TAZOBACTAM SODIUM
     Indication: Condition aggravated
     Dosage: 100 MG/KG/DAY DIVIDED THREE TIMES DAILY
     Route: 042
  2. PIPERACILLIN AND TAZOBACTAM [Suspect]
     Active Substance: PIPERACILLIN SODIUM\TAZOBACTAM SODIUM
     Indication: Cystic fibrosis lung
  3. AMIKACIN [Suspect]
     Active Substance: AMIKACIN
     Indication: Cystic fibrosis lung
     Dosage: 30 MILLIGRAM/KILOGRAM, ONCE A DAY
     Route: 042
  4. AMIKACIN [Suspect]
     Active Substance: AMIKACIN
     Indication: Condition aggravated

REACTIONS (2)
  - Drug reaction with eosinophilia and systemic symptoms [Recovered/Resolved]
  - Liver disorder [Recovered/Resolved]
